FAERS Safety Report 13581236 (Version 2)
Quarter: 2017Q2

REPORT INFORMATION
  Report Type: Report from Study
  Country: US (occurrence: US)
  Receive Date: 20170525
  Receipt Date: 20170613
  Transmission Date: 20170830
  Serious: Yes (Hospitalization)
  Sender: FDA-Public Use
  Company Number: US-ROCHE-1936878

PATIENT
  Age: 65 Year
  Sex: Female
  Weight: 79.45 kg

DRUGS (6)
  1. AMBIEN [Concomitant]
     Active Substance: ZOLPIDEM TARTRATE
  2. AZOR (UNITED STATES) [Concomitant]
  3. VITAMIN B6 [Concomitant]
     Active Substance: PYRIDOXINE HYDROCHLORIDE
  4. EVEROLIMUS [Suspect]
     Active Substance: EVEROLIMUS
     Indication: GENITAL NEOPLASM MALIGNANT FEMALE
     Dosage: 10MG IS TAKEN ORALLY (BY MOUTH) ONCE DAILY ON A CONTINUOUS BASIS IN TABLET FORM AND SHOULD BE TAKEN
     Route: 048
  5. ZOLOFT [Concomitant]
     Active Substance: SERTRALINE HYDROCHLORIDE
  6. BEVACIZUMAB [Suspect]
     Active Substance: BEVACIZUMAB
     Indication: GENITAL NEOPLASM MALIGNANT FEMALE
     Dosage: INTRAVENOUSLY (IV) ONCE EVERY 14 DAYS (AS PER PROTOCOL)
     Route: 042

REACTIONS (1)
  - Anal fissure [Recovered/Resolved]

NARRATIVE: CASE EVENT DATE: 20101209
